FAERS Safety Report 17950711 (Version 1)
Quarter: 2020Q2

REPORT INFORMATION
  Report Type: Spontaneous
  Country: PL (occurrence: PL)
  Receive Date: 20200626
  Receipt Date: 20200626
  Transmission Date: 20200714
  Serious: Yes (Other)
  Sender: FDA-Public Use
  Company Number: NVSC2020PL175800

PATIENT
  Sex: Female

DRUGS (6)
  1. PROTIFAR [Concomitant]
     Active Substance: DIETARY SUPPLEMENT
     Indication: PRODUCT USED FOR UNKNOWN INDICATION
     Dosage: UNK
     Route: 065
  2. SODIUM VALPROATE [Suspect]
     Active Substance: VALPROATE SODIUM
     Indication: PRODUCT USED FOR UNKNOWN INDICATION
     Dosage: UNK
     Route: 065
  3. CLOMIPRAMINE [Suspect]
     Active Substance: CLOMIPRAMINE
     Indication: PRODUCT USED FOR UNKNOWN INDICATION
     Dosage: UNK
     Route: 065
  4. LORAZEPAM. [Concomitant]
     Active Substance: LORAZEPAM
     Indication: PRODUCT USED FOR UNKNOWN INDICATION
     Dosage: UNK
     Route: 065
  5. ARIPIPRAZOLE. [Concomitant]
     Active Substance: ARIPIPRAZOLE
     Indication: PRODUCT USED FOR UNKNOWN INDICATION
     Dosage: UNK
     Route: 065
  6. SANDOSTATIN LAR DEPOT [Suspect]
     Active Substance: OCTREOTIDE ACETATE
     Indication: NEUROENDOCRINE TUMOUR
     Dosage: UNK
     Route: 065
     Dates: start: 20200224

REACTIONS (13)
  - Glucagonoma [Unknown]
  - Bipolar disorder [Unknown]
  - Diarrhoea [Unknown]
  - Peripheral swelling [Unknown]
  - Spinal osteoarthritis [Unknown]
  - Metastases to liver [Unknown]
  - Crying [Unknown]
  - Pancytopenia [Unknown]
  - Spondylolisthesis [Unknown]
  - Dehydration [Unknown]
  - Depressed mood [Unknown]
  - Haemangioma [Unknown]
  - Cachexia [Unknown]

NARRATIVE: CASE EVENT DATE: 20200508
